FAERS Safety Report 4695045-0 (Version None)
Quarter: 2005Q2

REPORT INFORMATION
  Report Type: 
  Country: None (occurrence: None)
  Receive Date: 20050617
  Receipt Date: 20050608
  Transmission Date: 20051028
  Serious: Yes (Other)
  Sender: FDA-Public Use
  Company Number: 2005086773

PATIENT
  Age: 65 Year
  Sex: Male

DRUGS (3)
  1. ZOXAN LP (DOXAZOSIN) [Suspect]
     Indication: BENIGN PROSTATIC HYPERPLASIA
     Dosage: 4 MG (4 MG, DAILY), ORAL
     Route: 048
     Dates: end: 20050607
  2. DIAMICRON (GLICLAZIDE) [Concomitant]
  3. METFORMIN HCL [Concomitant]

REACTIONS (4)
  - ANAEMIA [None]
  - LEUKOPENIA [None]
  - LYMPHOPENIA [None]
  - THROMBOCYTOPENIA [None]
